FAERS Safety Report 20466726 (Version 2)
Quarter: 2022Q4

REPORT INFORMATION
  Report Type: Spontaneous
  Country: US (occurrence: US)
  Receive Date: 20220213
  Receipt Date: 20221109
  Transmission Date: 20230112
  Serious: Yes (Other)
  Sender: FDA-Public Use
  Company Number: US-GILEAD-2022-0569359

PATIENT
  Sex: Male
  Weight: 68.027 kg

DRUGS (8)
  1. ATRIPLA [Suspect]
     Active Substance: EFAVIRENZ\EMTRICITABINE\TENOFOVIR DISOPROXIL FUMARATE
     Indication: HIV infection
     Dosage: UNK
     Route: 048
     Dates: start: 2007
  2. ATRIPLA [Suspect]
     Active Substance: EFAVIRENZ\EMTRICITABINE\TENOFOVIR DISOPROXIL FUMARATE
     Dosage: UNK
     Route: 048
     Dates: start: 200801, end: 2014
  3. TRIUMEQ [Concomitant]
     Active Substance: ABACAVIR SULFATE\DOLUTEGRAVIR SODIUM\LAMIVUDINE
  4. ASPIRIN [Concomitant]
     Active Substance: ASPIRIN
  5. DOVATO [Concomitant]
     Active Substance: DOLUTEGRAVIR SODIUM\LAMIVUDINE
  6. LEVETIRACETAM [Concomitant]
     Active Substance: LEVETIRACETAM
  7. OMEPRAZOLE [Concomitant]
     Active Substance: OMEPRAZOLE
  8. RANITIDINE [Concomitant]
     Active Substance: RANITIDINE

REACTIONS (22)
  - Renal injury [Unknown]
  - Nephropathy toxic [Unknown]
  - Chronic kidney disease [Not Recovered/Not Resolved]
  - Fanconi syndrome [Not Recovered/Not Resolved]
  - Osteoporosis [Unknown]
  - Renal impairment [Unknown]
  - Spinal fracture [Unknown]
  - Bone demineralisation [Unknown]
  - Pain [Not Recovered/Not Resolved]
  - Emotional distress [Not Recovered/Not Resolved]
  - Anxiety [Not Recovered/Not Resolved]
  - Anhedonia [Not Recovered/Not Resolved]
  - Osteopenia [Not Recovered/Not Resolved]
  - Bone disorder [Unknown]
  - Dysuria [Not Recovered/Not Resolved]
  - Pollakiuria [Not Recovered/Not Resolved]
  - Nocturia [Not Recovered/Not Resolved]
  - Arthralgia [Not Recovered/Not Resolved]
  - Skeletal injury [Unknown]
  - Anxiety [Unknown]
  - Gait disturbance [Not Recovered/Not Resolved]
  - Depression [Unknown]

NARRATIVE: CASE EVENT DATE: 20140101
